FAERS Safety Report 14926843 (Version 1)
Quarter: 2018Q2

REPORT INFORMATION
  Report Type: Spontaneous
  Country: FR (occurrence: FR)
  Receive Date: 20180523
  Receipt Date: 20180523
  Transmission Date: 20180711
  Serious: Yes (Other)
  Sender: FDA-Public Use
  Company Number: FR-MERCK KGAA-2048276

PATIENT
  Age: 61 Year
  Sex: Female

DRUGS (1)
  1. NOVOTHYROX [Suspect]
     Active Substance: LEVOTHYROXINE SODIUM
     Indication: PRODUCT USED FOR UNKNOWN INDICATION

REACTIONS (21)
  - C-reactive protein increased [Recovering/Resolving]
  - Arthralgia [None]
  - Asthenia [None]
  - Night sweats [None]
  - Headache [None]
  - Vitamin D decreased [None]
  - Alopecia [None]
  - Insomnia [None]
  - Tremor [None]
  - Gamma-glutamyltransferase increased [Recovering/Resolving]
  - Myalgia [None]
  - Gastrointestinal disorder [None]
  - Depression [None]
  - Anxiety [None]
  - Loss of personal independence in daily activities [None]
  - Amnesia [None]
  - Weight increased [None]
  - Blood pressure decreased [None]
  - Balance disorder [None]
  - Vertigo [None]
  - Fatigue [None]

NARRATIVE: CASE EVENT DATE: 201706
